FAERS Safety Report 6440927-2 (Version None)
Quarter: 2009Q4

REPORT INFORMATION
  Report Type: 
  Country: None (occurrence: None)
  Receive Date: 20091116
  Receipt Date: 20091111
  Transmission Date: 20100525
  Serious: Yes (Death)
  Sender: FDA-Public Use
  Company Number: US-ELI_LILLY_AND_COMPANY-US200911002918

PATIENT
  Sex: Female

DRUGS (2)
  1. GEMCITABINE HCL [Suspect]
     Indication: CERVIX CARCINOMA
     Dosage: 1000 MG/M2, DAYS 1 AND 8 EVERY 3 WEEKS
     Route: 042
  2. CISPLATIN [Concomitant]
     Indication: CERVIX CARCINOMA
     Dosage: 50 MG/M2, DAY 1 EVERY 3 WEEKS

REACTIONS (1)
  - DEATH [None]
